FAERS Safety Report 23803369 (Version 3)
Quarter: 2024Q2

REPORT INFORMATION
  Report Type: Spontaneous
  Country: DK (occurrence: DK)
  Receive Date: 20240501
  Receipt Date: 20240621
  Transmission Date: 20240716
  Serious: Yes (Other)
  Sender: FDA-Public Use
  Company Number: DK-VERTEX PHARMACEUTICALS-2024-007371

PATIENT
  Age: 11 Year
  Sex: Male
  Weight: 30 kg

DRUGS (9)
  1. ELEXACAFTOR\IVACAFTOR\TEZACAFTOR [Suspect]
     Active Substance: ELEXACAFTOR\IVACAFTOR\TEZACAFTOR
     Indication: Cystic fibrosis
     Dosage: 37.5 MG IVACAFTOR/ 25 MG TEZACAFTOR/ 50 MG ELEXACAFTOR, 2 TABS DAILY, 6-11 DOSE
     Route: 048
     Dates: start: 20220211, end: 2022
  2. ELEXACAFTOR\IVACAFTOR\TEZACAFTOR [Suspect]
     Active Substance: ELEXACAFTOR\IVACAFTOR\TEZACAFTOR
     Dosage: 75 MG IVACAFTOR/ 50 MG TEZACAFTOR/ 100 MG ELEXACAFTOR, 2 TABS IN MORNING
     Route: 048
     Dates: start: 20221114, end: 20240415
  3. KALYDECO [Suspect]
     Active Substance: IVACAFTOR
     Indication: Cystic fibrosis
     Dosage: UNK
     Route: 048
     Dates: start: 20240211, end: 20240415
  4. FUSIDIC ACID [Suspect]
     Active Substance: FUSIDIC ACID
     Indication: Product used for unknown indication
     Dosage: UNK
     Route: 048
     Dates: start: 2022
  5. FUSIDIC ACID [Suspect]
     Active Substance: FUSIDIC ACID
     Dosage: UNK
     Route: 048
     Dates: start: 2023
  6. FUSIDIC ACID [Suspect]
     Active Substance: FUSIDIC ACID
     Dosage: UNKNOWN DOSAGE REGIMEN
     Route: 048
     Dates: start: 20240330
  7. FLUCLOXACILLIN [Concomitant]
     Active Substance: FLUCLOXACILLIN
     Dosage: UNK
     Dates: start: 2022
  8. FLUCLOXACILLIN [Concomitant]
     Active Substance: FLUCLOXACILLIN
     Dosage: UNK
     Dates: start: 2023
  9. FLUCLOXACILLIN [Concomitant]
     Active Substance: FLUCLOXACILLIN
     Dosage: UNK
     Dates: start: 20240330

REACTIONS (1)
  - Intracranial pressure increased [Recovering/Resolving]

NARRATIVE: CASE EVENT DATE: 20240404
